FAERS Safety Report 10557830 (Version 1)
Quarter: 2014Q4

REPORT INFORMATION
  Report Type: Spontaneous
  Country: US (occurrence: None)
  Receive Date: 20141030
  Receipt Date: 20141030
  Transmission Date: 20150529
  Serious: Yes (Hospitalization)
  Sender: FDA-Public Use
  Company Number: None

PATIENT
  Age: 51 Year
  Sex: Male
  Weight: 110.2 kg

DRUGS (2)
  1. SULFAMETHOXAZOLE/TRIMETHOPRIM [Suspect]
     Active Substance: SULFAMETHOXAZOLE\TRIMETHOPRIM
     Indication: DIABETES MELLITUS
     Dosage: 1 TAB BID PO
     Route: 048
     Dates: start: 20141006, end: 20141013
  2. METFORMIN [Suspect]
     Active Substance: METFORMIN HYDROCHLORIDE
     Route: 048
     Dates: start: 20141002, end: 20141019

REACTIONS (3)
  - Scrotal abscess [None]
  - Erythema [None]
  - Rash pruritic [None]

NARRATIVE: CASE EVENT DATE: 20141019
